FAERS Safety Report 6862576-4 (Version None)
Quarter: 2010Q3

REPORT INFORMATION
  Report Type: 
  Country: None (occurrence: None)
  Receive Date: 20100721
  Receipt Date: 20100708
  Transmission Date: 20110219
  Serious: Yes (Hospitalization)
  Sender: FDA-Public Use
  Company Number: DE-ELI_LILLY_AND_COMPANY-DE201006004934

PATIENT
  Sex: Male

DRUGS (10)
  1. FORTEO [Suspect]
     Indication: OSTEOPOROSIS
     Dosage: 20 UG, DAILY (1/D)
     Route: 058
     Dates: end: 20100615
  2. OXYGESIC [Concomitant]
     Dosage: UNK, UNKNOWN
  3. CAPROS [Concomitant]
     Dosage: UNK, UNKNOWN
     Route: 065
  4. ARCOXIA [Concomitant]
     Dosage: 90 MG, UNK
     Route: 065
  5. RESOCHIN [Concomitant]
     Dosage: UNK, UNKNOWN
     Route: 065
  6. PREDNISOLONE [Concomitant]
     Dosage: 5 MG, UNK
  7. AMLODIPINE [Concomitant]
     Dosage: UNK, UNKNOWN
  8. ASPIRIN [Concomitant]
     Dosage: 1 D/F, UNK
     Route: 065
  9. OMEP [Concomitant]
     Dosage: UNK, UNKNOWN
     Route: 065
  10. MTX [Concomitant]
     Dosage: UNK, UNKNOWN
     Route: 065

REACTIONS (10)
  - ABDOMINAL DISTENSION [None]
  - BLOOD ALKALINE PHOSPHATASE INCREASED [None]
  - BLOOD CALCIUM INCREASED [None]
  - BLOOD CREATININE INCREASED [None]
  - DECREASED APPETITE [None]
  - FATIGUE [None]
  - GAMMA-GLUTAMYLTRANSFERASE INCREASED [None]
  - GENERAL PHYSICAL HEALTH DETERIORATION [None]
  - NAUSEA [None]
  - WEIGHT DECREASED [None]
